FAERS Safety Report 7068095-7 (Version None)
Quarter: 2010Q4

REPORT INFORMATION
  Report Type: 
  Country: None (occurrence: None)
  Receive Date: 20101027
  Receipt Date: 20101027
  Transmission Date: 20110411
  Serious: Yes (Other)
  Sender: FDA-Public Use
  Company Number: None

PATIENT
  Age: 57 Year
  Sex: Female
  Weight: 68.0396 kg

DRUGS (2)
  1. DACLIZUMAB BIOGEN [Suspect]
     Indication: MULTIPLE SCLEROSIS
     Dosage: COMPUTED MONTHLY IV
     Route: 042
     Dates: start: 20081001, end: 20100401
  2. OCRELIZUMAB BIOGEN [Suspect]

REACTIONS (2)
  - OFF LABEL USE [None]
  - SQUAMOUS CELL CARCINOMA [None]
